FAERS Safety Report 9776175 (Version 2)
Quarter: 2014Q1

REPORT INFORMATION
  Report Type: Spontaneous
  Country: JP (occurrence: None)
  Receive Date: 20131218
  Receipt Date: 20140205
  Transmission Date: 20141002
  Serious: Yes (Hospitalization, Other)
  Sender: FDA-Public Use
  Company Number: DSJ-2013-27038

PATIENT
  Age: 59 Year
  Sex: Male

DRUGS (8)
  1. OLMETEC (OLMESARTAN MEDOXOMIL) (TABLET) (OLMESARTAN MEDOXOMIL) [Suspect]
     Indication: HYPERTENSION
     Dates: end: 20130329
  2. NORVASC OD (AMLODIPINE BESILATE) (TABLET) (AMLODIPINE BESILATE) [Concomitant]
  3. E KEPPRA (LEVETIRACETAM) (TABLET) (LEVETIRACETAM) [Concomitant]
  4. ALEVIATIN (PHENYTOIN) (ORAL POWDER) (PHENYTOIN) [Concomitant]
  5. TEGRETOL (CARBAMAZEPINE) (GRANULES) (CARBAMAZEPINE) [Concomitant]
  6. MIYA-EM (CLOSTRIDIUM BUTYRICUM) (GRANULES) (CLOSTRIDIUM BUTYRICUM) [Concomitant]
  7. KALIMATE  (SODIUM POLYSTYRENE SULFONATE) [Concomitant]
  8. MINOMYCIN (MINOCYCLINE HYDROCHLORIDE) [Concomitant]

REACTIONS (4)
  - Blood potassium increased [None]
  - Cerebral haemorrhage [None]
  - Blood albumin decreased [None]
  - Cerebral haematoma [None]
